FAERS Safety Report 7366240-7 (Version None)
Quarter: 2011Q1

REPORT INFORMATION
  Report Type: 
  Country: None (occurrence: None)
  Receive Date: 20110309
  Receipt Date: 20110304
  Transmission Date: 20110831
  Serious: Yes (Other)
  Sender: FDA-Public Use
  Company Number: 201110193

PATIENT
  Age: 31 Year
  Sex: Female

DRUGS (1)
  1. LIORESAL [Suspect]
     Indication: MUSCLE SPASTICITY
     Dosage: 239.8 MCG, DAILY, INTRATHECAL
     Route: 037

REACTIONS (3)
  - PSEUDOMONAS TEST POSITIVE [None]
  - IMPLANT SITE INFECTION [None]
  - WOUND SECRETION [None]
